FAERS Safety Report 14664218 (Version 1)
Quarter: 2018Q1

REPORT INFORMATION
  Report Type: Spontaneous
  Country: US (occurrence: US)
  Receive Date: 20180319
  Receipt Date: 20180319
  Transmission Date: 20180509
  Serious: Yes (Hospitalization)
  Sender: FDA-Public Use
  Company Number: None

PATIENT
  Age: 74 Year
  Sex: Male
  Weight: 68.49 kg

DRUGS (12)
  1. CALCIUM PHOSPHATE [Concomitant]
     Active Substance: CALCIUM PHOSPHATE
  2. CARVEDILOL. [Concomitant]
     Active Substance: CARVEDILOL
  3. LOVASTATIN. [Concomitant]
     Active Substance: LOVASTATIN
  4. MULTIVITAMIN [Concomitant]
     Active Substance: VITAMINS
  5. FUROSEMIDE. [Concomitant]
     Active Substance: FUROSEMIDE
  6. ELIGARD [Concomitant]
     Active Substance: LEUPROLIDE ACETATE
  7. ASPIRIN. [Concomitant]
     Active Substance: ASPIRIN
  8. ENZALUTAMIDE [Suspect]
     Active Substance: ENZALUTAMIDE
     Indication: PROSTATE CANCER
     Route: 048
     Dates: start: 20170213
  9. FERROUS SULFATE. [Concomitant]
     Active Substance: FERROUS SULFATE
  10. HYDROCODONE BITARTRATE AND ACETAMINOPHEN [Concomitant]
     Active Substance: ACETAMINOPHEN\HYDROCODONE BITARTRATE
  11. LISINOPRIL. [Concomitant]
     Active Substance: LISINOPRIL
  12. ALBUTEROL INHALER [Concomitant]
     Active Substance: ALBUTEROL

REACTIONS (2)
  - Fall [None]
  - Humerus fracture [None]

NARRATIVE: CASE EVENT DATE: 20180312
